FAERS Safety Report 19715888 (Version 1)
Quarter: 2021Q3

REPORT INFORMATION
  Report Type: Spontaneous
  Country: JP (occurrence: JP)
  Receive Date: 20210818
  Receipt Date: 20210818
  Transmission Date: 20211014
  Serious: Yes (Death, Other)
  Sender: FDA-Public Use
  Company Number: JP-BAYER-2021-191472

PATIENT
  Age: 51 Year
  Sex: Male

DRUGS (4)
  1. NEXAVAR [Suspect]
     Active Substance: SORAFENIB
     Indication: HEPATOCELLULAR CARCINOMA
     Dosage: INCREASED DOSE TO 800 MG / DAY 1 MONTH AFTER RESUMPTION
     Route: 048
  2. NEXAVAR [Suspect]
     Active Substance: SORAFENIB
     Indication: HEPATOCELLULAR CARCINOMA
     Dosage: 400 MG DAILY RESUMED
     Route: 048
  3. NEXAVAR [Suspect]
     Active Substance: SORAFENIB
     Indication: HEPATOCELLULAR CARCINOMA
     Dosage: 400 MG DAILY
     Route: 048
  4. LENVATINIB MESILATE [Concomitant]
     Active Substance: LENVATINIB MESYLATE
     Indication: HEPATOCELLULAR CARCINOMA
     Dosage: 8 MG

REACTIONS (3)
  - Off label use [None]
  - Liver carcinoma ruptured [Fatal]
  - Metastases to bone [None]
